FAERS Safety Report 8803673 (Version 1)
Quarter: 2012Q4

REPORT INFORMATION
  Report Type: Report from Study
  Country: US (occurrence: US)
  Receive Date: 20120924
  Receipt Date: 20120924
  Transmission Date: 20130627
  Serious: No
  Sender: FDA-Public Use
  Company Number: US-JNJFOC-20120907876

PATIENT
  Sex: Female
  Weight: 90.72 kg

DRUGS (3)
  1. REMICADE [Suspect]
     Indication: COLITIS ULCERATIVE
     Route: 042
     Dates: start: 201105, end: 201207
  2. WELCHOL [Concomitant]
     Indication: COLITIS ULCERATIVE
     Route: 048
  3. TYLENOL [Concomitant]
     Route: 048

REACTIONS (1)
  - Herpes zoster [Recovering/Resolving]
